FAERS Safety Report 5040716-X (Version None)
Quarter: 2006Q3

REPORT INFORMATION
  Report Type: 
  Country: None (occurrence: None)
  Receive Date: 20060703
  Receipt Date: 20060317
  Transmission Date: 20061208
  Serious: Yes (Hospitalization)
  Sender: FDA-Public Use
  Company Number: PHEH2006US03629

PATIENT
  Age: 73 Year
  Sex: Male
  Weight: 83.446 kg

DRUGS (6)
  1. DIOVAN [Suspect]
     Indication: HYPERTENSION
     Dosage: 160 MG, QD
     Route: 048
     Dates: start: 20010614, end: 20020611
  2. DIOVAN [Suspect]
     Dosage: 320 MG, QD
     Route: 048
     Dates: start: 20030624, end: 20050119
  3. DIOVAN [Suspect]
     Dosage: 80 MG, QD
     Route: 048
     Dates: start: 19990127, end: 20010613
  4. ASPIRIN [Concomitant]
  5. DIOVAN HCT [Suspect]
     Indication: HYPERTENSION
     Dosage: 160MG VAL/12.5MG HCT, QD
     Route: 048
     Dates: start: 20020612, end: 20030923
  6. DIOVAN HCT [Suspect]
     Dosage: 160MG VAL/12.5MG HCT, QD
     Route: 048
     Dates: start: 20050120, end: 20060518

REACTIONS (5)
  - ASTHENIA [None]
  - BLOOD PRESSURE FLUCTUATION [None]
  - DIPLOPIA [None]
  - EPISTAXIS [None]
  - TRANSIENT ISCHAEMIC ATTACK [None]
